FAERS Safety Report 5453663-6 (Version None)
Quarter: 2007Q3

REPORT INFORMATION
  Report Type: 
  Country: None (occurrence: None)
  Receive Date: 20070917
  Receipt Date: 20070913
  Transmission Date: 20080115
  Serious: Yes (Death)
  Sender: FDA-Public Use
  Company Number: PHBS2007JP14535

PATIENT
  Age: 62 Year
  Sex: Female
  Weight: 56 kg

DRUGS (10)
  1. PRAMIPEXOLE DIHYDROCHLORIDE [Concomitant]
     Indication: PARKINSON'S DISEASE
     Dosage: 1.5 MG/D
     Route: 048
     Dates: start: 20050707
  2. NEODOPASOL [Concomitant]
     Indication: PARKINSON'S DISEASE
     Dosage: 300 MG/D
     Route: 048
     Dates: start: 19930603
  3. DOPS [Concomitant]
     Indication: HYPOTENSION
     Dosage: 300 MG/D
     Route: 048
     Dates: start: 19930224
  4. DEPAS [Concomitant]
     Indication: INSOMNIA
     Dosage: 0.5 MG/D
     Route: 048
     Dates: start: 20070901
  5. COMTAN [Suspect]
     Indication: PARKINSON'S DISEASE
     Dosage: 100 MG, TID
     Route: 048
     Dates: start: 20070809
  6. PANTOSIN [Suspect]
     Dosage: 300 MG/DAY
     Route: 048
  7. CLONAZEPAM [Concomitant]
     Indication: HYPOAESTHESIA
     Dosage: 1 MG/DAY
     Route: 048
  8. MAGLAX [Concomitant]
     Indication: CONSTIPATION
     Dosage: 990 MG/DAY
     Route: 048
  9. LAC B [Concomitant]
     Indication: CONSTIPATION
     Dosage: 3 G/DAY
     Route: 048
  10. ALFAROL [Concomitant]
     Dosage: 0.5 UG/DAY
     Route: 048

REACTIONS (6)
  - CARDIAC DISORDER [None]
  - CARDIO-RESPIRATORY ARREST [None]
  - FALL [None]
  - INTUBATION [None]
  - RESUSCITATION [None]
  - SHOCK [None]
